FAERS Safety Report 7430653-5 (Version None)
Quarter: 2011Q2

REPORT INFORMATION
  Report Type: 
  Country: None (occurrence: None)
  Receive Date: 20110421
  Receipt Date: 20110411
  Transmission Date: 20111010
  Serious: Yes (Hospitalization, Other)
  Sender: FDA-Public Use
  Company Number: US-ENDO PHARMACEUTICALS INC.-OPER20110085

PATIENT
  Sex: Female
  Weight: 63.106 kg

DRUGS (3)
  1. ANTI INFLAMMATORY DRUGS [Concomitant]
  2. OPANA ER [Suspect]
     Indication: PAIN
     Route: 048
  3. FIORICET [Suspect]
     Indication: MIGRAINE
     Dosage: UNK
     Route: 048

REACTIONS (3)
  - COMA [None]
  - APPARENT DEATH [None]
  - SYNCOPE [None]
